FAERS Safety Report 7679532-9 (Version None)
Quarter: 2011Q3

REPORT INFORMATION
  Report Type: 
  Country: None (occurrence: None)
  Receive Date: 20110812
  Receipt Date: 20110803
  Transmission Date: 20111222
  Serious: Yes (Death, Hospitalization)
  Sender: FDA-Public Use
  Company Number: JP-GENZYME-THYM-1002131

PATIENT
  Sex: Female
  Weight: 30 kg

DRUGS (14)
  1. LINEZOLID [Concomitant]
     Indication: ANTIBIOTIC PROPHYLAXIS
     Dosage: UNK
     Dates: start: 20101020, end: 20101101
  2. STEROID [Concomitant]
     Indication: ACUTE GRAFT VERSUS HOST DISEASE
     Dosage: UNK
     Dates: start: 20100917
  3. MICAFUNGIN SODIUM [Concomitant]
     Indication: ANTIFUNGAL PROPHYLAXIS
     Dosage: UNK
     Dates: start: 20101006
  4. TACROLIMUS [Concomitant]
     Indication: PROPHYLAXIS AGAINST GRAFT VERSUS HOST DISEASE
     Dosage: UNK
     Dates: start: 20100819
  5. DANAPAROID SODIUM [Concomitant]
     Indication: THROMBOTIC MICROANGIOPATHY
     Dosage: UNK
     Dates: start: 20101005, end: 20101029
  6. FLUDARA [Suspect]
     Indication: BONE MARROW CONDITIONING REGIMEN
     Dosage: UNK
     Dates: start: 20100801
  7. BUSULFAN [Concomitant]
     Indication: BONE MARROW CONDITIONING REGIMEN
     Dosage: UNK
     Dates: start: 20100801
  8. DORIPENEM HYDRATE [Concomitant]
     Indication: ANTIBIOTIC PROPHYLAXIS
     Dosage: UNK
     Dates: start: 20101004, end: 20101107
  9. THYMOGLOBULIN [Suspect]
     Indication: ACUTE GRAFT VERSUS HOST DISEASE
     Dosage: 40 MG, QD
     Route: 042
     Dates: start: 20101015, end: 20101015
  10. MYCOPHENOLATE MOFETIL [Concomitant]
     Indication: ACUTE GRAFT VERSUS HOST DISEASE
     Dosage: UNK
     Dates: start: 20100823, end: 20100909
  11. MYCOPHENOLATE MOFETIL [Concomitant]
     Dosage: UNK
     Dates: start: 20101018, end: 20101107
  12. TACROLIMUS [Concomitant]
     Indication: ACUTE GRAFT VERSUS HOST DISEASE
  13. VANCOMYCIN [Concomitant]
     Indication: ANTIBIOTIC PROPHYLAXIS
     Dosage: UNK
     Dates: start: 20101006, end: 20101019
  14. THYMOGLOBULIN [Suspect]
     Dosage: 37.5 MG, QD
     Route: 042
     Dates: start: 20101101, end: 20101101

REACTIONS (3)
  - CYTOMEGALOVIRUS TEST POSITIVE [None]
  - ACUTE GRAFT VERSUS HOST DISEASE [None]
  - THERAPEUTIC RESPONSE DECREASED [None]
